FAERS Safety Report 18489891 (Version 2)
Quarter: 2021Q2

REPORT INFORMATION
  Report Type: Report from Study
  Country: BR (occurrence: BR)
  Receive Date: 20201111
  Receipt Date: 20210515
  Transmission Date: 20210717
  Serious: Yes (Life-Threatening, Hospitalization, Other)
  Sender: FDA-Public Use
  Company Number: NVSC2020BR137953

PATIENT
  Age: 41 Year
  Sex: Female

DRUGS (2)
  1. COSENTYX [Suspect]
     Active Substance: SECUKINUMAB
     Indication: PSORIATIC ARTHROPATHY
     Dosage: 300 MG (ATTACK DOSES)
     Route: 065
     Dates: start: 20200205, end: 20200304
  2. COSENTYX [Suspect]
     Active Substance: SECUKINUMAB
     Dosage: UNK, QMO
     Route: 065
     Dates: start: 20201221

REACTIONS (19)
  - Retching [Recovered/Resolved]
  - Abdominal pain [Recovering/Resolving]
  - Thirst decreased [Recovered/Resolved]
  - Pyrexia [Recovered/Resolved]
  - Sensitisation [Not Recovered/Not Resolved]
  - Back disorder [Not Recovered/Not Resolved]
  - Abdominal distension [Recovered/Resolved]
  - Alopecia [Not Recovered/Not Resolved]
  - Haematochezia [Recovered/Resolved]
  - Gastrointestinal infection [Recovered/Resolved]
  - Decreased appetite [Recovered/Resolved]
  - Ageusia [Recovered/Resolved]
  - Asthenia [Recovered/Resolved]
  - Diarrhoea [Recovered/Resolved]
  - Vomiting [Recovered/Resolved]
  - COVID-19 [Recovered/Resolved with Sequelae]
  - Vomiting [Recovered/Resolved]
  - Weight decreased [Not Recovered/Not Resolved]
  - Abdominal pain upper [Recovered/Resolved]

NARRATIVE: CASE EVENT DATE: 202004
